FAERS Safety Report 8063017-4 (Version None)
Quarter: 2012Q1

REPORT INFORMATION
  Report Type: 
  Country: None (occurrence: None)
  Receive Date: 20120117
  Receipt Date: 20120102
  Transmission Date: 20120608
  Serious: Yes (Death, Life-Threatening, Hospitalization, Other)
  Sender: FDA-Public Use
  Company Number: 2012MA000073

PATIENT
  Sex: Male
  Weight: 90.9916 kg

DRUGS (33)
  1. POTASSIUM CHLORIDE [Concomitant]
  2. AMBIEN [Concomitant]
  3. CATALOL [Concomitant]
  4. LEVOTHYROXINE SODIUM [Concomitant]
  5. OXYCODONE HCL [Concomitant]
  6. BETAPACE [Concomitant]
  7. INSPRA [Concomitant]
  8. DIGOXIN [Suspect]
     Dosage: 0.25 MG;QD;PO
     Route: 048
     Dates: start: 20030402, end: 20080504
  9. SOTALOL HCL [Concomitant]
  10. METOLAZONE [Concomitant]
  11. PERCOCET [Concomitant]
  12. FUROSEMIDE [Concomitant]
  13. MIRALAX [Concomitant]
  14. MIRTAZAPINE [Concomitant]
  15. ANTIBIOTICS [Concomitant]
  16. ALTACE [Concomitant]
  17. DOPAMINE HCL [Concomitant]
  18. OXYCONTIN [Concomitant]
  19. OXYCODONE HCL [Concomitant]
  20. APAP TAB [Concomitant]
  21. PROTONIX [Concomitant]
  22. LORTAB [Concomitant]
  23. DOBUTAMINE HCL [Concomitant]
  24. NARCOTICS [Concomitant]
  25. INOTROPES [Concomitant]
  26. FLUIDS [Concomitant]
  27. MILINONE [Concomitant]
  28. CAPTOPRIL [Concomitant]
  29. COUMADIN [Concomitant]
  30. KLOR-CON [Concomitant]
  31. COREG [Concomitant]
  32. COLCHICINE [Concomitant]
  33. AMIODARONE HCL [Concomitant]

REACTIONS (56)
  - LARGE INTESTINAL ULCER [None]
  - BLOOD PRESSURE DECREASED [None]
  - GASTROINTESTINAL HAEMORRHAGE [None]
  - PULMONARY OEDEMA [None]
  - CARDIOGENIC SHOCK [None]
  - PLEURAL EFFUSION [None]
  - BUNDLE BRANCH BLOCK RIGHT [None]
  - INTERVERTEBRAL DISC DEGENERATION [None]
  - CONGESTIVE CARDIOMYOPATHY [None]
  - RESTRICTIVE PULMONARY DISEASE [None]
  - CARDIAC FAILURE CONGESTIVE [None]
  - TREATMENT NONCOMPLIANCE [None]
  - SEPTIC SHOCK [None]
  - AORTIC STENOSIS [None]
  - SCIATICA [None]
  - OEDEMA PERIPHERAL [None]
  - DEPRESSION [None]
  - PULMONARY HYPERTENSION [None]
  - RENAL FAILURE [None]
  - MYOCARDIAL ISCHAEMIA [None]
  - HYPOTENSION [None]
  - LEFT VENTRICULAR DYSFUNCTION [None]
  - INFERIOR VENA CAVA DILATATION [None]
  - CARDIOACTIVE DRUG LEVEL ABOVE THERAPEUTIC [None]
  - BACK PAIN [None]
  - DYSPNOEA [None]
  - DEHYDRATION [None]
  - NAUSEA [None]
  - VOMITING [None]
  - GOUT [None]
  - CARDIOMYOPATHY [None]
  - DERMATITIS ATOPIC [None]
  - HAEMATOCHEZIA [None]
  - COLONIC POLYP [None]
  - VENTRICULAR TACHYCARDIA [None]
  - DECREASED APPETITE [None]
  - MALNUTRITION [None]
  - AORTIC VALVE INCOMPETENCE [None]
  - MITRAL VALVE CALCIFICATION [None]
  - TRICUSPID VALVE INCOMPETENCE [None]
  - MITRAL VALVE REPLACEMENT [None]
  - FATIGUE [None]
  - ANAEMIA [None]
  - TOXICITY TO VARIOUS AGENTS [None]
  - HYPONATRAEMIA [None]
  - HAEMORRHOIDS [None]
  - NECK PAIN [None]
  - METABOLIC ENCEPHALOPATHY [None]
  - HYPOKALAEMIA [None]
  - SPLENOMEGALY [None]
  - CONSTIPATION [None]
  - ABDOMINAL PAIN [None]
  - HYPERLIPIDAEMIA [None]
  - ARRHYTHMIA SUPRAVENTRICULAR [None]
  - DYSSTASIA [None]
  - HYPOTHYROIDISM [None]
